FAERS Safety Report 8111405-X (Version None)
Quarter: 2012Q1

REPORT INFORMATION
  Report Type: 
  Country: None (occurrence: None)
  Receive Date: 20120203
  Receipt Date: 20111115
  Transmission Date: 20120608
  Serious: Yes (Life-Threatening, Other)
  Sender: FDA-Public Use
  Company Number: US-GLAXOSMITHKLINE-A0953125A

PATIENT
  Age: 63 Year
  Sex: Male

DRUGS (4)
  1. TOPIRAMATE [Concomitant]
  2. LYRICA [Concomitant]
  3. DILANTIN [Concomitant]
  4. LAMOTRIGINE [Suspect]
     Indication: CONVULSION
     Dosage: 300MG TWICE PER DAY
     Route: 048
     Dates: start: 19980101

REACTIONS (3)
  - WHITE BLOOD CELL COUNT INCREASED [None]
  - RASH [None]
  - EOSINOPHIL COUNT INCREASED [None]
